FAERS Safety Report 8335571-6 (Version None)
Quarter: 2012Q2

REPORT INFORMATION
  Report Type: 
  Country: None (occurrence: None)
  Receive Date: 20120504
  Receipt Date: 20120502
  Transmission Date: 20120825
  Serious: Yes (Hospitalization)
  Sender: FDA-Public Use
  Company Number: FR-AMGEN-FRASP2012027537

PATIENT
  Age: 60 Year
  Sex: Female

DRUGS (2)
  1. FOLFIRI [Concomitant]
  2. VECTIBIX [Suspect]
     Indication: COLORECTAL CANCER
     Dosage: UNK
     Dates: start: 20120426, end: 20120426

REACTIONS (4)
  - CHILLS [None]
  - THROMBOCYTOPENIA [None]
  - MALAISE [None]
  - VOMITING [None]
